FAERS Safety Report 19421723 (Version 1)
Quarter: 2021Q2

REPORT INFORMATION
  Report Type: Spontaneous
  Country: FR (occurrence: FR)
  Receive Date: 20210615
  Receipt Date: 20210615
  Transmission Date: 20210717
  Serious: Yes (Hospitalization, Other)
  Sender: FDA-Public Use
  Company Number: FR-AUROBINDO-AUR-APL-2021-024494

PATIENT
  Age: 80 Year
  Sex: Male
  Weight: 72 kg

DRUGS (12)
  1. LASILIX FAIBLE [Concomitant]
     Active Substance: FUROSEMIDE
     Indication: PRODUCT USED FOR UNKNOWN INDICATION
     Dosage: UNK
     Route: 048
  2. ACTONEL [Concomitant]
     Active Substance: RISEDRONATE SODIUM
     Indication: PRODUCT USED FOR UNKNOWN INDICATION
     Dosage: UNK
     Route: 065
  3. NORSET [Concomitant]
     Active Substance: MIRTAZAPINE
     Indication: PRODUCT USED FOR UNKNOWN INDICATION
     Dosage: UNK
     Route: 065
  4. CEREZYME [Suspect]
     Active Substance: IMIGLUCERASE
     Indication: PRODUCT USED FOR UNKNOWN INDICATION
     Dosage: 10 DF, 15 DAY
     Route: 065
     Dates: start: 20131213
  5. SERESTA [Concomitant]
     Active Substance: OXAZEPAM
     Indication: PRODUCT USED FOR UNKNOWN INDICATION
     Dosage: UNK
     Route: 048
  6. MOVICOL [Concomitant]
     Active Substance: POLYETHYLENE GLYCOL 3350\POTASSIUM CHLORIDE\SODIUM BICARBONATE\SODIUM CHLORIDE
     Indication: PRODUCT USED FOR UNKNOWN INDICATION
     Dosage: 1 IN THE MORNING AT 8:00 A.M.
     Route: 065
  7. DOLIPRANE [Concomitant]
     Active Substance: ACETAMINOPHEN
     Indication: PRODUCT USED FOR UNKNOWN INDICATION
     Dosage: 500 MILLIGRAM, 3 TIMES A DAY
     Route: 048
  8. SODIUM CHLORIDE. [Concomitant]
     Active Substance: SODIUM CHLORIDE
     Indication: PRODUCT USED FOR UNKNOWN INDICATION
     Dosage: 0.9% RIGID BAG 250 ML
     Route: 048
  9. NEORECORMON [Concomitant]
     Active Substance: ERYTHROPOIETIN
     Indication: PRODUCT USED FOR UNKNOWN INDICATION
     Dosage: UNK
     Route: 058
  10. LAMALINE [Concomitant]
     Indication: PRODUCT USED FOR UNKNOWN INDICATION
     Dosage: 1 IN THE MORNING AT 8:00 A.M.
     Route: 065
  11. CALCIDOSE VITAMINE D [Concomitant]
     Active Substance: CALCIUM\CHOLECALCIFEROL
     Indication: PRODUCT USED FOR UNKNOWN INDICATION
     Dosage: UNK
     Route: 065
  12. LINEZOLID. [Suspect]
     Active Substance: LINEZOLID
     Indication: DEVICE RELATED INFECTION
     Dosage: UNK
     Route: 065

REACTIONS (4)
  - Device related infection [Unknown]
  - Product administration error [Unknown]
  - Postoperative wound infection [Unknown]
  - Pancytopenia [Unknown]
